FAERS Safety Report 23061547 (Version 2)
Quarter: 2023Q4

REPORT INFORMATION
  Report Type: Spontaneous
  Country: US (occurrence: US)
  Receive Date: 20231013
  Receipt Date: 20231027
  Transmission Date: 20240109
  Serious: No
  Sender: FDA-Public Use
  Company Number: US-JNJFOC-20231017563

PATIENT
  Age: 92 Year
  Sex: Female

DRUGS (6)
  1. XARELTO [Suspect]
     Active Substance: RIVAROXABAN
     Indication: Atrial fibrillation
     Route: 048
     Dates: start: 20231006
  2. XARELTO [Suspect]
     Active Substance: RIVAROXABAN
     Indication: Cerebrovascular accident prophylaxis
  3. GABAPENTIN [Concomitant]
     Active Substance: GABAPENTIN
     Indication: Product used for unknown indication
  4. GABAPENTIN [Concomitant]
     Active Substance: GABAPENTIN
     Route: 048
  5. ACIPHEX [Concomitant]
     Active Substance: RABEPRAZOLE SODIUM
     Indication: Gastrooesophageal reflux disease
  6. ASPIRIN [Concomitant]
     Active Substance: ASPIRIN
     Route: 065

REACTIONS (6)
  - Muscle spasms [Unknown]
  - Musculoskeletal stiffness [Unknown]
  - Muscle tightness [Unknown]
  - Dyspnoea [Unknown]
  - Gait disturbance [Unknown]
  - Treatment noncompliance [Unknown]

NARRATIVE: CASE EVENT DATE: 20231007
